FAERS Safety Report 10008035 (Version 1)
Quarter: 2014Q1

REPORT INFORMATION
  Report Type: Spontaneous
  Country: CN (occurrence: CN)
  Receive Date: 20140313
  Receipt Date: 20140313
  Transmission Date: 20141002
  Serious: Yes (Death, Hospitalization, Other)
  Sender: FDA-Public Use
  Company Number: PHHY2014CN027897

PATIENT
  Age: 72 Year
  Sex: Female

DRUGS (10)
  1. HYDRALAZINE [Suspect]
     Indication: HYPERTENSION
     Dosage: 25 MG, TID
  2. VALSARTAN [Concomitant]
  3. ATORVASTATIN [Concomitant]
  4. CALCITRIOL [Concomitant]
  5. DARBEPOETIN ALFA [Concomitant]
  6. IRON SULFATE [Concomitant]
  7. INSULIN ISOPHANE [Concomitant]
  8. CALCIUM CARBONATE [Concomitant]
  9. FUROSEMIDE [Concomitant]
  10. FOLIC ACID [Concomitant]

REACTIONS (19)
  - Cardiac arrest [Fatal]
  - Tachyarrhythmia [Fatal]
  - Toxic epidermal necrolysis [Recovering/Resolving]
  - Purpura [Unknown]
  - Blister [Recovering/Resolving]
  - Pyrexia [Unknown]
  - Skin erosion [Recovering/Resolving]
  - Nikolsky^s sign [Recovering/Resolving]
  - Skin lesion [Recovering/Resolving]
  - Azotaemia [Unknown]
  - Leukopenia [Unknown]
  - Conjunctivitis [Unknown]
  - Pulmonary sepsis [Unknown]
  - Skin exfoliation [Unknown]
  - Inflammation [Unknown]
  - General physical health deterioration [Unknown]
  - Hyperglycaemia [Unknown]
  - Wound healing normal [Unknown]
  - Renal failure [Unknown]
